FAERS Safety Report 16124254 (Version 1)
Quarter: 2019Q1

REPORT INFORMATION
  Report Type: Spontaneous
  Country: CA (occurrence: CA)
  Receive Date: 20190327
  Receipt Date: 20190327
  Transmission Date: 20190418
  Serious: Yes (Other)
  Sender: FDA-Public Use
  Company Number: CA-PFIZER INC-2019127358

PATIENT
  Age: 15 Year
  Sex: Female

DRUGS (8)
  1. CASPOFUNGIN ACETATE. [Suspect]
     Active Substance: CASPOFUNGIN ACETATE
     Dosage: UNK
     Route: 065
  2. CYCLOPHOSPHAMIDE. [Suspect]
     Active Substance: CYCLOPHOSPHAMIDE
     Dosage: UNK
     Route: 065
  3. BUSULFAN. [Suspect]
     Active Substance: BUSULFAN
     Indication: STEM CELL TRANSPLANT
     Dosage: UNK
     Route: 065
  4. CASPOFUNGIN ACETATE. [Suspect]
     Active Substance: CASPOFUNGIN ACETATE
     Indication: ANTIFUNGAL PROPHYLAXIS
     Dosage: 50 MG/M2, 1X/DAY
     Route: 042
  5. CYTARABINE. [Suspect]
     Active Substance: CYTARABINE
     Indication: IMMUNOSUPPRESSANT DRUG THERAPY
     Dosage: UNK
     Route: 065
  6. FLUDARABINE PHOSPHATE. [Suspect]
     Active Substance: FLUDARABINE PHOSPHATE
     Indication: IMMUNOSUPPRESSANT DRUG THERAPY
     Dosage: UNK
     Route: 065
  7. PROCYTOX [Suspect]
     Active Substance: CYCLOPHOSPHAMIDE
     Dosage: UNK
     Route: 065
  8. CANCIDAS [Suspect]
     Active Substance: CASPOFUNGIN ACETATE
     Indication: ANTIFUNGAL PROPHYLAXIS
     Dosage: UNK
     Route: 065

REACTIONS (3)
  - Alternaria infection [Recovered/Resolved]
  - Systemic mycosis [Recovered/Resolved]
  - Upper respiratory fungal infection [Recovered/Resolved]
